FAERS Safety Report 4279720-8 (Version None)
Quarter: 2004Q1

REPORT INFORMATION
  Report Type: 
  Country: None (occurrence: None)
  Receive Date: 20040127
  Receipt Date: 20031113
  Transmission Date: 20041129
  Serious: Yes (Life-Threatening, Hospitalization, Other)
  Sender: FDA-Public Use
  Company Number: WAES 0311USA01518

PATIENT
  Age: 50 Year
  Sex: Female

DRUGS (2)
  1. FOSAMAX [Suspect]
     Indication: OSTEOPOROSIS
     Route: 048
     Dates: start: 20031021, end: 20031026
  2. CALCIUM (UNSPECIFIED) [Concomitant]

REACTIONS (5)
  - DYSPHAGIA [None]
  - INSOMNIA [None]
  - OESOPHAGITIS ULCERATIVE [None]
  - PAIN [None]
  - PYREXIA [None]
